FAERS Safety Report 8003560 (Version 2)
Quarter: 2013Q1

REPORT INFORMATION
  Report Type: Spontaneous
  Country: US (occurrence: US)
  Receive Date: 20110622
  Receipt Date: 20130115
  Transmission Date: 20140127
  Serious: Yes (Hospitalization, Other)
  Sender: FDA-Public Use
  Company Number: US-AMGEN-USASP2011027191

PATIENT
  Age: 70 Year
  Sex: Female

DRUGS (24)
  1. ENBREL [Suspect]
     Indication: RHEUMATOID ARTHRITIS
     Dosage: 50 MG, QWK
     Dates: start: 201104
  2. ENBREL [Suspect]
     Dosage: 50 MG, QWK
     Dates: start: 19990401, end: 200810
  3. ALLOPURINOL [Concomitant]
     Dosage: 100 MG, QD
     Route: 048
  4. AMBIEN [Concomitant]
     Dosage: 10 MG, PRN
     Route: 048
  5. CALCITONIN SALMON [Concomitant]
     Dosage: 200 UNIT, QD
     Route: 045
  6. DEXILANT [Concomitant]
     Dosage: 60 MG, QD
     Route: 048
  7. FUROSEMIDE [Concomitant]
     Dosage: 20 MG, QD
     Route: 048
  8. FUROSEMIDE [Concomitant]
     Dosage: 40 MG, UNK
     Route: 048
  9. LORTAB [Concomitant]
     Dosage: 7.5 MG, UNK
     Route: 048
  10. KLOR-CON M20 [Concomitant]
     Dosage: 20 MEQ, QD
     Route: 048
  11. METOPROLOL [Concomitant]
     Dosage: 12.5 MG, QD
     Route: 048
  12. MINOCYCLINE [Concomitant]
     Dosage: 100 MG, Q12H
     Route: 048
     Dates: start: 201006, end: 20110329
  13. NEURONTIN [Concomitant]
     Dosage: 300 MG, Q12H
     Route: 048
  14. OSCAL [Concomitant]
     Dosage: 500 UNK, Q12H
     Route: 048
  15. PENTOXIFYLLINE [Concomitant]
     Dosage: 400 MG, Q12H
     Route: 048
  16. PRAVASTATIN [Concomitant]
     Dosage: 20 MG, UNK
     Route: 048
  17. SYMBICORT [Concomitant]
     Dosage: UNK
  18. VITAMIN D [Concomitant]
     Dosage: 50000 UNIT, QWK
     Route: 048
  19. METHOTREXATE [Concomitant]
     Dosage: UNK
     Dates: end: 2008
  20. PLAQUENIL [Concomitant]
     Dosage: UNK
  21. ARAVA [Concomitant]
     Dosage: UNK
     Dates: start: 2009, end: 2009
  22. PREDNISONE [Concomitant]
     Dosage: UNK
  23. GOLD [Concomitant]
     Dosage: UNK
  24. MOBIC [Concomitant]
     Dosage: UNK UNK, PRN

REACTIONS (22)
  - Diverticular perforation [Recovered/Resolved]
  - Gastrointestinal stoma complication [Recovered/Resolved]
  - Diabetes mellitus [Unknown]
  - Fall [Recovering/Resolving]
  - Osteoporosis [Recovered/Resolved]
  - Abdominal wound dehiscence [Recovered/Resolved]
  - Pelvic fracture [Recovering/Resolving]
  - Diverticulitis [Recovered/Resolved]
  - Incision site infection [Recovered/Resolved]
  - Rheumatoid arthritis [Not Recovered/Not Resolved]
  - Nodule [Unknown]
  - Weight decreased [Not Recovered/Not Resolved]
  - Gastrooesophageal reflux disease [Unknown]
  - Back pain [Unknown]
  - Ligament sprain [Not Recovered/Not Resolved]
  - Mycobacterium marinum infection [Unknown]
  - Atypical mycobacterial infection [Unknown]
  - Furuncle [Unknown]
  - Upper respiratory tract infection [Unknown]
  - Bacterial infection [Unknown]
  - Diarrhoea [Unknown]
  - Abscess [Recovered/Resolved]
